FAERS Safety Report 16084983 (Version 1)
Quarter: 2019Q2

REPORT INFORMATION
  Report Type: Spontaneous
  Country: US (occurrence: US)
  Receive Date: 20190318
  Receipt Date: 20190318
  Transmission Date: 20190711
  Serious: Yes (Death)
  Sender: FDA-Public Use
  Company Number: None

PATIENT
  Age: 66 Year
  Sex: Male

DRUGS (1)
  1. SODIUM BICARBONATE INJECTION [Suspect]
     Active Substance: SODIUM BICARBONATE
     Indication: DRUG THERAPY

REACTIONS (2)
  - General physical health deterioration [None]
  - Internal haemorrhage [None]

NARRATIVE: CASE EVENT DATE: 20190205
